FAERS Safety Report 10223358 (Version 1)
Quarter: 2014Q2

REPORT INFORMATION
  Report Type: Spontaneous
  Country: US (occurrence: None)
  Receive Date: 20140606
  Receipt Date: 20140606
  Transmission Date: 20141212
  Serious: Yes (Life-Threatening, Hospitalization)
  Sender: FDA-Public Use
  Company Number: None

PATIENT
  Age: 17 Year
  Sex: Male
  Weight: 84.5 kg

DRUGS (7)
  1. METHOTREXATE [Suspect]
     Indication: T-CELL LYMPHOMA
     Route: 037
  2. COG PROTOCOL AALL0434 [Concomitant]
  3. CHEMOTHERAPY [Concomitant]
  4. ENOXAPARIN [Concomitant]
  5. METHYLPHENIDATE [Concomitant]
  6. RISPERIDONE [Concomitant]
  7. BACTRIM DS [Concomitant]

REACTIONS (8)
  - Dizziness [None]
  - Gait disturbance [None]
  - Fatigue [None]
  - Unresponsive to stimuli [None]
  - Loss of consciousness [None]
  - Paraesthesia [None]
  - Leukoencephalopathy [None]
  - Ammonia increased [None]
